FAERS Safety Report 19386250 (Version 1)
Quarter: 2021Q2

REPORT INFORMATION
  Report Type: Spontaneous
  Country: US (occurrence: US)
  Receive Date: 20210605
  Receipt Date: 20210605
  Transmission Date: 20210717
  Serious: Yes (Other)
  Sender: FDA-Public Use
  Company Number: None

PATIENT
  Age: 46 Year
  Sex: Female
  Weight: 92.7 kg

DRUGS (9)
  1. OTS IBUPROFEN [Concomitant]
  2. CLONIDINE. [Concomitant]
     Active Substance: CLONIDINE
  3. BUTALBITAL /ACETAMINOPHEN/CAFF TABS [Suspect]
     Active Substance: ACETAMINOPHEN\BUTALBITAL\CAFFEINE
     Indication: MIGRAINE
     Dosage: ?          QUANTITY:1 CAPSULE(S);?
     Route: 048
  4. BUTALBITAL [Concomitant]
     Active Substance: BUTALBITAL
  5. BUTALBITAL /ACETAMINOPHEN/CAFF TABS [Suspect]
     Active Substance: ACETAMINOPHEN\BUTALBITAL\CAFFEINE
     Indication: TENSION HEADACHE
     Dosage: ?          QUANTITY:1 CAPSULE(S);?
     Route: 048
  6. LIDOCAINE PATCH [Concomitant]
     Active Substance: LIDOCAINE
  7. FLEXERIL [Concomitant]
     Active Substance: CYCLOBENZAPRINE HYDROCHLORIDE
  8. PROPRANOLOL [Concomitant]
     Active Substance: PROPRANOLOL HYDROCHLORIDE
  9. LORAZEPAM. [Concomitant]
     Active Substance: LORAZEPAM

REACTIONS (5)
  - Tooth abscess [None]
  - Diarrhoea [None]
  - Hangover [None]
  - Condition aggravated [None]
  - Dental caries [None]

NARRATIVE: CASE EVENT DATE: 20210605
